FAERS Safety Report 7917120-7 (Version None)
Quarter: 2011Q4

REPORT INFORMATION
  Report Type: 
  Country: None (occurrence: None)
  Receive Date: 20111116
  Receipt Date: 20111114
  Transmission Date: 20120403
  Serious: Yes (Death, Hospitalization)
  Sender: FDA-Public Use
  Company Number: FR-SANOFI-AVENTIS-2011SA046453

PATIENT
  Age: 85 Year
  Sex: Male

DRUGS (4)
  1. TAXOTERE [Suspect]
     Route: 042
     Dates: start: 20110623, end: 20110623
  2. NEUPOGEN [Concomitant]
  3. SOLU-MEDROL [Concomitant]
  4. ZOFRAN [Concomitant]

REACTIONS (3)
  - DIARRHOEA [None]
  - RENAL FAILURE [None]
  - FEBRILE BONE MARROW APLASIA [None]
